FAERS Safety Report 26128602 (Version 2)
Quarter: 2025Q4

REPORT INFORMATION
  Report Type: Spontaneous
  Country: AE (occurrence: AE)
  Receive Date: 20251207
  Receipt Date: 20251215
  Transmission Date: 20260118
  Serious: Yes (Life-Threatening, Hospitalization)
  Sender: MACLEODS
  Company Number: AE-MACLEODS PHARMA-MAC2025056798

PATIENT

DRUGS (1)
  1. METFORMIN [Suspect]
     Active Substance: METFORMIN HYDROCHLORIDE
     Indication: Polycystic ovarian syndrome
     Dosage: INGESTION BY THE PATIENT OF APPROXIMATELY 30 TABLETS OF METFORMIN 500 MG, REGULARLY USING METFORMIN
     Route: 048

REACTIONS (7)
  - Suicide attempt [Recovering/Resolving]
  - Toxicity to various agents [Recovered/Resolved]
  - Agitation [Recovered/Resolved]
  - Metabolic acidosis [Recovered/Resolved]
  - Lactic acidosis [Recovering/Resolving]
  - Blood pressure decreased [Recovering/Resolving]
  - Intentional overdose [Recovering/Resolving]
